FAERS Safety Report 14944183 (Version 63)
Quarter: 2023Q4

REPORT INFORMATION
  Report Type: Report from Study
  Country: CA (occurrence: CA)
  Receive Date: 20180528
  Receipt Date: 20231218
  Transmission Date: 20240109
  Serious: Yes (Hospitalization, Other)
  Sender: FDA-Public Use
  Company Number: PHHY2018CA033672

PATIENT
  Age: 73 Year
  Sex: Female
  Weight: 63.49 kg

DRUGS (7)
  1. SANDOSTATIN LAR DEPOT [Suspect]
     Active Substance: OCTREOTIDE ACETATE
     Indication: Carcinoid tumour
     Dosage: 30 MG, Q2W
     Route: 030
     Dates: start: 20171229
  2. SANDOSTATIN LAR DEPOT [Suspect]
     Active Substance: OCTREOTIDE ACETATE
  3. SANDOSTATIN LAR DEPOT [Suspect]
     Active Substance: OCTREOTIDE ACETATE
  4. PANTOPRAZOLE SODIUM [Concomitant]
     Active Substance: PANTOPRAZOLE SODIUM
     Indication: Product used for unknown indication
     Dosage: UNK
     Route: 065
     Dates: start: 2019
  5. AMOXICILLIN [Concomitant]
     Active Substance: AMOXICILLIN
     Indication: Product used for unknown indication
     Dosage: 1 DOSAGE FORM, BID (1 CAPSULE 2 TIME S A DAY FOR 2 WEEKS)
     Route: 065
     Dates: start: 20210322
  6. CLARITHROMYCIN [Concomitant]
     Active Substance: CLARITHROMYCIN
     Indication: Product used for unknown indication
     Dosage: 1 DOSAGE FORM, BID (1 TABLET 2 TIMES A DAY FOR 2 WEEKS)
     Route: 065
     Dates: start: 20210322
  7. METRONIDAZOLE [Concomitant]
     Active Substance: METRONIDAZOLE
     Indication: Product used for unknown indication
     Dosage: 1 DOSAGE FORM, BID (1 TABLET 2 TIMES A DAY FOR 2 WEEKS)
     Route: 065
     Dates: start: 20210322

REACTIONS (47)
  - Hip fracture [Unknown]
  - Renal impairment [Unknown]
  - Blood pressure systolic increased [Unknown]
  - Blood pressure increased [Unknown]
  - Bicytopenia [Unknown]
  - Osteoarthritis [Unknown]
  - Arthralgia [Unknown]
  - Choking [Unknown]
  - Metastases to lung [Unknown]
  - Hypotension [Unknown]
  - Cardiovascular disorder [Unknown]
  - Procedural pain [Unknown]
  - Weight decreased [Unknown]
  - Mood altered [Unknown]
  - Blood pressure fluctuation [Unknown]
  - Mass [Unknown]
  - Skin plaque [Unknown]
  - Erythema [Unknown]
  - Bronchitis [Unknown]
  - Cough [Recovering/Resolving]
  - Anaemia [Not Recovered/Not Resolved]
  - Fatigue [Unknown]
  - Muscle spasms [Unknown]
  - Fall [Unknown]
  - Somnolence [Unknown]
  - Contusion [Unknown]
  - Body temperature decreased [Unknown]
  - Blood pressure decreased [Unknown]
  - Limb asymmetry [Unknown]
  - Hypertension [Unknown]
  - Rib fracture [Unknown]
  - Abdominal pain upper [Unknown]
  - Abdominal pain [Recovering/Resolving]
  - Asthenia [Unknown]
  - Heart rate decreased [Unknown]
  - Platelet count decreased [Unknown]
  - Headache [Unknown]
  - Diarrhoea [Recovering/Resolving]
  - Vomiting [Recovering/Resolving]
  - Nausea [Unknown]
  - Jaundice [Unknown]
  - Malaise [Unknown]
  - Abdominal distension [Unknown]
  - Dizziness [Unknown]
  - Injection site pain [Unknown]
  - Injection site haemorrhage [Unknown]
  - Inappropriate schedule of product administration [Unknown]

NARRATIVE: CASE EVENT DATE: 20181012
